FAERS Safety Report 10211854 (Version 1)
Quarter: 2014Q2

REPORT INFORMATION
  Report Type: Spontaneous
  Country: US (occurrence: US)
  Receive Date: 20140602
  Receipt Date: 20140602
  Transmission Date: 20141212
  Serious: Yes (Other)
  Sender: FDA-Public Use
  Company Number: US-AMGEN-USASP2014032660

PATIENT
  Age: 79 Year
  Sex: Female

DRUGS (8)
  1. ENBREL [Suspect]
     Indication: RHEUMATOID ARTHRITIS
     Dosage: 50 MG, QWK
     Route: 065
     Dates: start: 2008
  2. METHOTREXATE [Concomitant]
     Dosage: UNK
  3. FOLIC ACID [Concomitant]
     Dosage: UNK
  4. PHENYTOIN [Concomitant]
     Dosage: 100 MG, UNK
  5. VITAMIN D                          /00107901/ [Concomitant]
     Dosage: UNK
  6. VITAMIN B12                        /00056201/ [Concomitant]
     Dosage: UNK
  7. CALCIUM [Concomitant]
     Dosage: UNK
  8. L THYROXINE [Concomitant]
     Dosage: UNK

REACTIONS (6)
  - Pneumonia [Unknown]
  - Productive cough [Unknown]
  - Cough [Unknown]
  - Upper-airway cough syndrome [Unknown]
  - Infection [Unknown]
  - Sinusitis [Unknown]
